FAERS Safety Report 10009849 (Version 2)
Quarter: 2014Q1

REPORT INFORMATION
  Report Type: Spontaneous
  Country: US (occurrence: US)
  Receive Date: 20140312
  Receipt Date: 20140312
  Transmission Date: 20141002
  Serious: No
  Sender: FDA-Public Use
  Company Number: US-INCYTE CORPORATION-2013IN000270

PATIENT
  Age: 86 Year
  Sex: Male
  Weight: 70.3 kg

DRUGS (11)
  1. JAKAFI [Suspect]
     Indication: MYELOFIBROSIS
     Dosage: 20 MG, BID
     Route: 048
     Dates: start: 20130129, end: 20130226
  2. LOSARTAN [Concomitant]
  3. PAROXETINE [Concomitant]
  4. CRESTOR [Concomitant]
  5. ASPIRIN [Concomitant]
  6. MECLIZINE [Concomitant]
  7. ADVAIR [Concomitant]
  8. COREG [Concomitant]
  9. PRAVACHOL [Concomitant]
  10. SINGULAIR [Concomitant]
  11. SPIRIVA [Concomitant]

REACTIONS (3)
  - Fall [Recovered/Resolved]
  - Dizziness [Unknown]
  - Drug dose omission [Unknown]
